FAERS Safety Report 6599630-0 (Version None)
Quarter: 2010Q1

REPORT INFORMATION
  Report Type: 
  Country: None (occurrence: None)
  Receive Date: 20100224
  Receipt Date: 20100218
  Transmission Date: 20100710
  Serious: Yes (Death)
  Sender: FDA-Public Use
  Company Number: US-WYE-H13690710

PATIENT
  Age: 51 Year
  Sex: Male

DRUGS (6)
  1. CORDARONE [Suspect]
     Dosage: UNSPECIFIED CHRONIC EXPOSURE, CONTINUOUS OR REPEATED EXPOSURE OCCURRING OVER GREATER THAN 8 HOURS
     Dates: start: 20080101
  2. OXYCODONE HCL AND ACETAMINOPHEN [Suspect]
     Dosage: UNSPECIFIED CHRONIC EXPOSURE, CONTINUOUS OR REPEATED EXPOSURE OCCURRING OVER GREATER THAN 8 HOURS
     Dates: start: 20080101
  3. OXYCODONE HCL [Suspect]
     Dosage: UNSPECIFIED CHRONIC EXPOSURE, CONTINUOUS OR REPEATED EXPOSURE OCCURRING OVER GREATER THAN 8 HOURS
     Dates: start: 20080101
  4. ZOLPIDEM [Suspect]
     Dosage: UNSPECIFIED CHRONIC EXPOSURE, CONTINUOUS OR REPEATED EXPOSURE OCCURRING OVER GREATER THAN 8 HOURS
     Dates: start: 20080101
  5. TRAZODONE HCL [Suspect]
     Dosage: UNSPECIFIED CHRONIC EXPOSURE, CONTINUOUS OR REPEATED EXPOSURE OCCURRING OVER GREATER THAN 8 HOURS
     Dates: start: 20080101
  6. QUETIAPINE [Suspect]
     Dosage: UNSPECIFIED CHRONIC EXPOSURE, CONTINUOUS OR REPEATED EXPOSURE OCCURRING OVER GREATER THAN 8 HOURS
     Dates: start: 20080101

REACTIONS (1)
  - COMPLETED SUICIDE [None]
